FAERS Safety Report 8025049-1 (Version None)
Quarter: 2012Q1

REPORT INFORMATION
  Report Type: 
  Country: None (occurrence: None)
  Receive Date: 20120103
  Receipt Date: 20111220
  Transmission Date: 20120608
  Serious: Yes (Hospitalization)
  Sender: FDA-Public Use
  Company Number: 2011MA018071

PATIENT
  Age: 46 Year
  Sex: Male

DRUGS (10)
  1. MAGNESIUM HYDROXIDE TAB [Concomitant]
  2. COTRIM [Concomitant]
  3. ACETYLSALICYLZUUR [Concomitant]
  4. METOPROLOL SUCCINATE [Concomitant]
  5. MONO-CEDOCARD [Concomitant]
  6. FOLIUMZUUR [Concomitant]
  7. VALACYCLOVIR HYDROCHLORIDE [Suspect]
     Indication: PROPHYLAXIS
     Dosage: 500 MG;BID
     Dates: start: 20110901, end: 20111208
  8. COTRIM [Concomitant]
  9. CLOPIDOGREL [Concomitant]
  10. CALCIUM CARBONATE [Concomitant]

REACTIONS (8)
  - ACUTE MYOCARDIAL INFARCTION [None]
  - HYPOKALAEMIA [None]
  - HYPOCALCAEMIA [None]
  - LYMPHANGIOMA [None]
  - CARDIAC FAILURE [None]
  - ACUTE CORONARY SYNDROME [None]
  - HYPOMAGNESAEMIA [None]
  - SLEEP APNOEA SYNDROME [None]
